FAERS Safety Report 22243794 (Version 3)
Quarter: 2023Q2

REPORT INFORMATION
  Report Type: Report from Study
  Country: GB (occurrence: GB)
  Receive Date: 20230424
  Receipt Date: 20230629
  Transmission Date: 20230721
  Serious: Yes (Other)
  Sender: FDA-Public Use
  Company Number: GB-Merck Healthcare KGaA-9396977

PATIENT
  Sex: Female

DRUGS (3)
  1. MAVENCLAD [Suspect]
     Active Substance: CLADRIBINE
     Indication: Multiple sclerosis
     Dosage: YEAR ONE WEEK ONE THERAPY, TWO TABLETS ON DAYS 1 TO 4 AND ONE TABLETS ON DAY 5
     Route: 048
     Dates: start: 20220111
  2. MAVENCLAD [Suspect]
     Active Substance: CLADRIBINE
     Dosage: YEAR ONE WEEK FIVE THERAPY, 2 TABLETS ON DAYS 1 TO 3 AND 1 TABLET ON DAYS 4 TO 5
     Route: 048
     Dates: start: 20220208
  3. MAVENCLAD [Suspect]
     Active Substance: CLADRIBINE
     Dosage: YEAR TWO WEEK ONE THERAPY
     Route: 048
     Dates: start: 20230317

REACTIONS (2)
  - Periorbital cellulitis [Unknown]
  - Cellulitis orbital [Unknown]
